FAERS Safety Report 15722303 (Version 1)
Quarter: 2018Q4

REPORT INFORMATION
  Report Type: Spontaneous
  Country: GB (occurrence: GB)
  Receive Date: 20181214
  Receipt Date: 20181214
  Transmission Date: 20190205
  Serious: Yes (Other)
  Sender: FDA-Public Use
  Company Number: GB-AUROBINDO-AUR-APL-2018-059853

PATIENT
  Age: 40 Year
  Sex: Female
  Weight: 49 kg

DRUGS (1)
  1. TOPIRAMATE. [Suspect]
     Active Substance: TOPIRAMATE
     Indication: MIGRAINE
     Dosage: 50 MILLIGRAM
     Route: 065
     Dates: start: 20180925, end: 20181011

REACTIONS (1)
  - Neutropenia [Recovered/Resolved]
